FAERS Safety Report 5753479-7 (Version None)
Quarter: 2008Q2

REPORT INFORMATION
  Report Type: 
  Country: None (occurrence: None)
  Receive Date: 20080530
  Receipt Date: 20080320
  Transmission Date: 20081010
  Serious: Yes (Other)
  Sender: FDA-Public Use
  Company Number: US-AMGEN-US264871

PATIENT
  Sex: Male
  Weight: 122.8 kg

DRUGS (8)
  1. VECTIBIX [Suspect]
     Indication: COLORECTAL CANCER
     Route: 042
     Dates: start: 20070904
  2. LORTAB [Concomitant]
  3. OXYCONTIN [Concomitant]
  4. LEXAPRO [Concomitant]
  5. HYDROCHLOROTHIAZIDE [Concomitant]
  6. CLINDAMYCIN [Concomitant]
     Route: 061
  7. ALEVE [Concomitant]
  8. ATIVAN [Concomitant]

REACTIONS (1)
  - HYPOMAGNESAEMIA [None]
